FAERS Safety Report 19458398 (Version 1)
Quarter: 2021Q2

REPORT INFORMATION
  Report Type: Spontaneous
  Country: US (occurrence: US)
  Receive Date: 20210624
  Receipt Date: 20210624
  Transmission Date: 20210717
  Serious: Yes (Death)
  Sender: FDA-Public Use
  Company Number: US-EISAI MEDICAL RESEARCH-EC-2018-037867

PATIENT
  Sex: Female

DRUGS (5)
  1. LENVATINIB [Suspect]
     Active Substance: LENVATINIB
     Dosage: 10?14 MG
     Route: 048
     Dates: start: 201710
  2. LENVATINIB [Suspect]
     Active Substance: LENVATINIB
     Route: 048
     Dates: start: 201811, end: 201901
  3. LENVATINIB [Suspect]
     Active Substance: LENVATINIB
     Indication: FOLLICULAR THYROID CANCER
     Route: 048
     Dates: start: 201701, end: 201707
  4. THYROXINE [Concomitant]
     Active Substance: LEVOTHYROXINE
     Indication: HORMONE SUPPRESSION THERAPY
     Dosage: DOSE AND FREQUENCY UNKNOWN
     Route: 048
  5. LENVATINIB [Suspect]
     Active Substance: LENVATINIB
     Dosage: DOSE TITRATED UP (DOSING AND FREQUENCY UNKNOWN)
     Route: 048
     Dates: end: 201811

REACTIONS (7)
  - Fatigue [Unknown]
  - Diarrhoea [Unknown]
  - Nausea [Unknown]
  - Chest pain [Unknown]
  - Vomiting [Unknown]
  - Decreased appetite [Unknown]
  - Drug level decreased [Recovering/Resolving]

NARRATIVE: CASE EVENT DATE: 2017
